FAERS Safety Report 11189305 (Version 1)
Quarter: 2015Q2

REPORT INFORMATION
  Report Type: Spontaneous
  Country: US (occurrence: US)
  Receive Date: 20150615
  Receipt Date: 20150615
  Transmission Date: 20150821
  Serious: No
  Sender: FDA-Public Use
  Company Number: US-DSJP-DSU-2015-110634

PATIENT
  Age: 60 Year
  Sex: Female
  Weight: 122 kg

DRUGS (6)
  1. AMLODIPINE [Suspect]
     Active Substance: AMLODIPINE BESYLATE
     Dosage: 10 MG, QD
  2. BENICAR [Suspect]
     Active Substance: OLMESARTAN MEDOXOMIL
     Indication: PRODUCT USED FOR UNKNOWN INDICATION
     Dosage: UNK
     Route: 048
  3. UNKNOWN MEDICATION FOR UNDERACTIVE THYROID [Concomitant]
     Indication: HYPOTHYROIDISM
     Dosage: UNK
  4. AMLODIPINE [Suspect]
     Active Substance: AMLODIPINE BESYLATE
     Indication: HYPERTENSION
     Dosage: 20 MG, QD
     Dates: start: 20150324
  5. TRIBENZOR [Suspect]
     Active Substance: AMLODIPINE BESYLATE\HYDROCHLOROTHIAZIDE\OLMESARTAN MEDOXOMIL
     Indication: PRODUCT USED FOR UNKNOWN INDICATION
     Dosage: 40/??/?? MG, UNK
     Route: 048
  6. HYDROCHLOROTHIAZIDE. [Suspect]
     Active Substance: HYDROCHLOROTHIAZIDE
     Indication: DIURETIC THERAPY
     Dosage: UNK

REACTIONS (7)
  - Joint swelling [Not Recovered/Not Resolved]
  - Weight increased [Not Recovered/Not Resolved]
  - Erythema [Unknown]
  - Peripheral swelling [Not Recovered/Not Resolved]
  - Drug ineffective [Not Recovered/Not Resolved]
  - Blood pressure increased [Not Recovered/Not Resolved]
  - Somnolence [Unknown]
